FAERS Safety Report 7423190-5 (Version None)
Quarter: 2011Q2

REPORT INFORMATION
  Report Type: 
  Country: None (occurrence: None)
  Receive Date: 20110419
  Receipt Date: 20101007
  Transmission Date: 20111010
  Serious: Yes (Hospitalization, Other)
  Sender: FDA-Public Use
  Company Number: US-BAYER-201017361NA

PATIENT
  Age: 20 Year
  Sex: Female
  Weight: 85.714 kg

DRUGS (6)
  1. YASMIN [Suspect]
     Indication: MENSTRUAL CYCLE MANAGEMENT
  2. OCELLA [Suspect]
     Indication: CONTRACEPTION
     Dosage: UNK
     Dates: start: 20080701, end: 20090501
  3. PANTOPRAZOLE [Concomitant]
  4. OCELLA [Suspect]
     Indication: MENSTRUAL CYCLE MANAGEMENT
  5. YASMIN [Suspect]
     Indication: OVARIAN CYST
     Dosage: UNK
     Route: 048
     Dates: start: 20060101, end: 20070101
  6. YASMIN [Suspect]
     Indication: CONTRACEPTION

REACTIONS (14)
  - ABDOMINAL PAIN UPPER [None]
  - QUALITY OF LIFE DECREASED [None]
  - CHOLELITHIASIS [None]
  - NAUSEA [None]
  - GASTROOESOPHAGEAL REFLUX DISEASE [None]
  - BILIARY COLIC [None]
  - ANXIETY [None]
  - CHEST PAIN [None]
  - ABDOMINAL PAIN [None]
  - CHOLECYSTITIS CHRONIC [None]
  - VOMITING [None]
  - MEDICAL DIET [None]
  - BACK PAIN [None]
  - PROCEDURAL PAIN [None]
